FAERS Safety Report 19577016 (Version 2)
Quarter: 2022Q1

REPORT INFORMATION
  Report Type: Spontaneous
  Country: US (occurrence: US)
  Receive Date: 20210719
  Receipt Date: 20220112
  Transmission Date: 20220423
  Serious: No
  Sender: FDA-Public Use
  Company Number: US-GLENMARK PHARMACEUTICALS-2020GMK050505

PATIENT

DRUGS (1)
  1. MUPIROCIN [Suspect]
     Active Substance: MUPIROCIN
     Indication: Preoperative care
     Dosage: UNK, BID (ADVISED TO APPLY TWICE DAILY THREE DAYS PRIOR TO SURGERY)
     Route: 045

REACTIONS (2)
  - Product use issue [Unknown]
  - Product use in unapproved indication [Unknown]
